FAERS Safety Report 16831925 (Version 4)
Quarter: 2024Q1

REPORT INFORMATION
  Report Type: Report from Study
  Country: US (occurrence: US)
  Receive Date: 20190920
  Receipt Date: 20240104
  Transmission Date: 20240410
  Serious: Yes (Death, Hospitalization, Other)
  Sender: FDA-Public Use
  Company Number: US-ACADIA PHARMACEUTICALS INC.-ACA-2019-014099

PATIENT
  Age: 75 Year
  Sex: Female

DRUGS (21)
  1. NUPLAZID [Suspect]
     Active Substance: PIMAVANSERIN TARTRATE
     Indication: Parkinson^s disease
     Dosage: 34 MILLIGRAM, QD
     Route: 048
  2. NUPLAZID [Suspect]
     Active Substance: PIMAVANSERIN TARTRATE
     Dosage: 34 MILLIGRAM, QD
     Route: 048
     Dates: start: 20191113
  3. NUPLAZID [Suspect]
     Active Substance: PIMAVANSERIN TARTRATE
     Dosage: 34 MILLIGRAM, QD
     Route: 048
     Dates: start: 20230426
  4. AMANTADINE HYDROCHLORIDE [Concomitant]
     Active Substance: AMANTADINE HYDROCHLORIDE
     Dosage: 100 MILLIGRAM, BID (1 CAPSULE TWICE DAILY)
     Route: 048
  5. ASPIRIN [Concomitant]
     Active Substance: ASPIRIN
     Dosage: 81 MILLIGRAM, QD (1 TABLET DAILY AS DIRECTED)
     Route: 048
     Dates: start: 20171214
  6. ATORVASTATIN CALCIUM [Concomitant]
     Active Substance: ATORVASTATIN CALCIUM
     Dosage: 80 MILLIGRAM, QD (1 TABLET AT BEDTIME)
     Route: 048
     Dates: start: 20230404
  7. CARBIDOPA, LEVODOPA AND ENTACAPONE [Concomitant]
     Active Substance: CARBIDOPA\ENTACAPONE\LEVODOPA
     Indication: Parkinson^s disease
     Dosage: 37.5-150-200 MG (ONE TABLET FIVE TIMES DAILY)
     Route: 048
     Dates: start: 20160517
  8. DOCUSATE CALCIUM [Concomitant]
     Active Substance: DOCUSATE CALCIUM
     Dosage: 240 MILLIGRAM, QD (1 TABLET AT BEDTIME AS NEEDED)
     Route: 048
     Dates: start: 20190123
  9. GLYCOPYRROLATE [Concomitant]
     Active Substance: GLYCOPYRROLATE
     Indication: Salivary hypersecretion
     Dosage: 1 MILLIGRAM, BID (1 TABLET TWICE DAILY)
     Route: 048
     Dates: start: 20210308
  10. PROBIOTICS NOS [Concomitant]
     Active Substance: PROBIOTICS NOS
     Dosage: EXTRA STRENGTH AS DIRECTED
     Route: 048
     Dates: start: 20160915
  11. METOPROLOL SUCCINATE [Concomitant]
     Active Substance: METOPROLOL SUCCINATE
     Dosage: 25 MILLIGRAM, QD (1 TABLET DAILY)
     Route: 048
     Dates: start: 20230404
  12. MILK OF MAGNESIA [Concomitant]
     Active Substance: MAGNESIUM HYDROXIDE
     Dosage: 400 MG/5ML (AT BEDTIME)
     Route: 048
     Dates: start: 20210308
  13. OMEPRAZOLE [Concomitant]
     Active Substance: OMEPRAZOLE
     Dosage: 20 MILLIGRAM
     Route: 048
     Dates: start: 20210425
  14. VITAMIN E [Concomitant]
     Active Substance: .ALPHA.-TOCOPHEROL
     Dosage: 1000 UNITS, QD (1 CAPSULE DAILY)
     Route: 048
     Dates: start: 20230404
  15. VITAMIN C [Concomitant]
     Active Substance: ASCORBIC ACID
     Dosage: 500 MILLIGRAM, QD (1 CAPSULE DAILY)
     Route: 048
     Dates: start: 20230404
  16. TYLENOL [Concomitant]
     Active Substance: ACETAMINOPHEN
     Dosage: 325 MILLIGRAM, PRN (TAKE 2 TABLETS PRN)
     Route: 048
     Dates: start: 20160915
  17. SERTRALINE HYDROCHLORIDE [Concomitant]
     Active Substance: SERTRALINE HYDROCHLORIDE
     Dosage: 50 MILLIGRAM, QD (1 TABLET BY MOUTH AS DIRECTED)
     Route: 048
     Dates: start: 20230404
  18. PYRIDIUM [Concomitant]
     Active Substance: PHENAZOPYRIDINE
     Dosage: 100 MILLIGRAM, TID (1 TABLET EVERY 8 HOURS PRN)
     Route: 048
     Dates: start: 20160915
  19. QUETIAPINE FUMARATE [Concomitant]
     Active Substance: QUETIAPINE FUMARATE
     Dosage: 100 MILLIGRAM, QD (1 TABLET AT BEDTIME)
     Route: 048
     Dates: start: 20221106
  20. QUETIAPINE FUMARATE [Concomitant]
     Active Substance: QUETIAPINE FUMARATE
     Dosage: 25 MILLIGRAM, QD (1 TABLET AT BEDTIME)
     Route: 048
     Dates: start: 20221106
  21. OXYBUTYNIN CHLORIDE [Concomitant]
     Active Substance: OXYBUTYNIN CHLORIDE
     Dosage: 5 MILLIGRAM, QD (1 TABLET DAILY)
     Dates: start: 20161214

REACTIONS (5)
  - Death [Recovered/Resolved]
  - Gastroenteritis viral [Recovered/Resolved]
  - Norovirus infection [Recovered/Resolved]
  - Dehydration [Recovered/Resolved]
  - Syncope [Unknown]

NARRATIVE: CASE EVENT DATE: 20230320
